FAERS Safety Report 25988674 (Version 2)
Quarter: 2025Q4

REPORT INFORMATION
  Report Type: Spontaneous
  Country: JP (occurrence: JP)
  Receive Date: 20251103
  Receipt Date: 20251114
  Transmission Date: 20260117
  Serious: Yes (Hospitalization, Other)
  Sender: CATALYST PHARMA
  Company Number: JP-CATALYSTPHARMACEUTICALPARTNERS-JP-CATA-25-01636

PATIENT
  Age: 50 Year
  Sex: Male

DRUGS (14)
  1. PERAMPANEL [Suspect]
     Active Substance: PERAMPANEL
     Indication: Epilepsy
     Dosage: 12 MILLIGRAM(S), 1 IN 1 DAY
     Route: 048
     Dates: start: 20250221, end: 2025
  2. PERAMPANEL [Suspect]
     Active Substance: PERAMPANEL
     Dosage: 10 MILLIGRAM(S), 1 IN 1 DAY
     Route: 048
     Dates: start: 20250518, end: 2025
  3. PERAMPANEL [Suspect]
     Active Substance: PERAMPANEL
     Dosage: 8 MILLIGRAM(S), 1 IN 1 DAY
     Route: 048
     Dates: start: 20250528
  4. BRIVARACETAM [Suspect]
     Active Substance: BRIVARACETAM
     Indication: Epilepsy
     Dosage: 25 MILLIGRAM, FREQUENCY UNKNOWN
     Route: 065
     Dates: start: 20250502, end: 20250510
  5. BRIVARACETAM [Suspect]
     Active Substance: BRIVARACETAM
     Dosage: 25 MILLIGRAM, FREQUENCY UNKNOWN
     Route: 065
     Dates: start: 20250528
  6. BRIVARACETAM [Suspect]
     Active Substance: BRIVARACETAM
     Dosage: 100 MILLIGRAM, FREQUENCY UNKNOWN
     Route: 065
  7. BRIVARACETAM [Suspect]
     Active Substance: BRIVARACETAM
     Dosage: 125 MILLIGRAM, FREQUENCY UNKNOWN
     Route: 065
  8. RISPERIDONE [Suspect]
     Active Substance: RISPERIDONE
     Indication: Product used for unknown indication
     Dosage: 1 MG
     Route: 065
     Dates: start: 20250509, end: 20250516
  9. CARBAMAZEPINE [Concomitant]
     Active Substance: CARBAMAZEPINE
     Indication: Epilepsy
     Dosage: 700 MILLIGRAM, FREQUENCY UNKNOWN
     Route: 048
     Dates: end: 2025
  10. PHENOBARBITAL [Concomitant]
     Active Substance: PHENOBARBITAL
     Indication: Epilepsy
     Dosage: 90 MILLIGRAM, FREQUENCY UNKNOWN
     Route: 048
     Dates: end: 2025
  11. ZONISAMIDE [Concomitant]
     Active Substance: ZONISAMIDE
     Indication: Product used for unknown indication
     Dosage: UNK
     Route: 065
  12. TOPIRAMATE [Concomitant]
     Active Substance: TOPIRAMATE
     Indication: Product used for unknown indication
     Dosage: UNK
     Route: 065
  13. CLOBAZAM [Concomitant]
     Active Substance: CLOBAZAM
     Indication: Product used for unknown indication
     Dosage: UNK
     Route: 065
  14. LEVETIRACETAM [Concomitant]
     Active Substance: LEVETIRACETAM
     Indication: Product used for unknown indication
     Dosage: UNK
     Route: 065

REACTIONS (4)
  - Seizure [Unknown]
  - Seizure [Recovered/Resolved]
  - Postictal psychosis [Unknown]
  - Psychotic disorder [Recovering/Resolving]

NARRATIVE: CASE EVENT DATE: 20250201
